FAERS Safety Report 10510571 (Version 1)
Quarter: 2014Q4

REPORT INFORMATION
  Report Type: Spontaneous
  Country: US (occurrence: None)
  Receive Date: 20141008
  Receipt Date: 20141008
  Transmission Date: 20150528
  Serious: No
  Sender: FDA-Public Use
  Company Number: CIO14065283

PATIENT
  Sex: Female

DRUGS (2)
  1. CREST PRO-HEALTH ALL-AROUND PROTECTION [Suspect]
     Active Substance: STANNOUS FLUORIDE
     Dosage: 1 APPLIC-A THIN RIBBON ON BRUSH, 2/DAY, INTRAORAL
     Dates: start: 20090101, end: 20140915
  2. CREST 3D WHITE [Suspect]
     Active Substance: SODIUM FLUORIDE
     Dosage: UNKNOWN, INTRAORAL

REACTIONS (5)
  - Gingival cyst [None]
  - Stomatitis [None]
  - Noninfective gingivitis [None]
  - Gingivitis [None]
  - Bone loss [None]
